FAERS Safety Report 8077460-0 (Version None)
Quarter: 2012Q1

REPORT INFORMATION
  Report Type: 
  Country: None (occurrence: None)
  Receive Date: 20120127
  Receipt Date: 20120118
  Transmission Date: 20120608
  Serious: Yes (Hospitalization)
  Sender: FDA-Public Use
  Company Number: DE-BRISTOL-MYERS SQUIBB COMPANY-16360489

PATIENT
  Age: 52 Year
  Sex: Male
  Weight: 82 kg

DRUGS (6)
  1. MINIPRESS [Concomitant]
     Route: 048
  2. NIF-TEN [Concomitant]
     Dosage: NIF-TEN 50
     Route: 048
  3. GLUCOPHAGE [Suspect]
     Route: 048
  4. CORVATON [Concomitant]
     Route: 048
  5. ASPIRIN [Concomitant]
     Route: 048
  6. LOVASTATIN [Concomitant]
     Route: 048

REACTIONS (4)
  - LACTIC ACIDOSIS [None]
  - DYSPNOEA [None]
  - BREATH ODOUR [None]
  - PANCREATITIS [None]
